FAERS Safety Report 24534205 (Version 1)
Quarter: 2024Q4

REPORT INFORMATION
  Report Type: Report from Study
  Country: US (occurrence: US)
  Receive Date: 20241022
  Receipt Date: 20241022
  Transmission Date: 20250114
  Serious: Yes (Death)
  Sender: DAIICHI
  Company Number: US-DSJP-DSU-2024-116469

PATIENT
  Age: 63 Year
  Sex: Male

DRUGS (3)
  1. ENHERTU [Suspect]
     Active Substance: FAM-TRASTUZUMAB DERUXTECAN-NXKI
     Indication: Product used for unknown indication
     Dosage: UNK, ONCE EVERY 3 WK
     Route: 042
     Dates: start: 20240405
  2. ENHERTU [Suspect]
     Active Substance: FAM-TRASTUZUMAB DERUXTECAN-NXKI
     Dosage: 360 MG, ONCE EVERY 3 WK
     Route: 042
  3. ENHERTU [Suspect]
     Active Substance: FAM-TRASTUZUMAB DERUXTECAN-NXKI
     Dosage: 300 MG, ONCE EVERY 3 WK
     Route: 042

REACTIONS (2)
  - Death [Fatal]
  - Drug intolerance [Unknown]

NARRATIVE: CASE EVENT DATE: 20240401
